FAERS Safety Report 25971845 (Version 1)
Quarter: 2025Q4

REPORT INFORMATION
  Report Type: Report from Study
  Country: US (occurrence: US)
  Receive Date: 20251029
  Receipt Date: 20251029
  Transmission Date: 20260118
  Serious: Yes (Other)
  Sender: PUMA
  Company Number: US-PUMA BIOTECHNOLOGY, INC.-2025-PUM-US001215

PATIENT

DRUGS (1)
  1. NERLYNX [Suspect]
     Active Substance: NERATINIB
     Indication: Product used for unknown indication
     Dosage: 160 MG, DAILY
     Route: 048

REACTIONS (2)
  - Neoplasm [Unknown]
  - Underdose [Unknown]
